FAERS Safety Report 7488564-5 (Version None)
Quarter: 2011Q2

REPORT INFORMATION
  Report Type: 
  Country: None (occurrence: None)
  Receive Date: 20110518
  Receipt Date: 20110408
  Transmission Date: 20111010
  Serious: Yes (Hospitalization, Other)
  Sender: FDA-Public Use
  Company Number: US-BAYER-201037401NA

PATIENT
  Age: 30 Year
  Sex: Female
  Weight: 117.91 kg

DRUGS (3)
  1. DROSPIRENONE AND ETHINYL ESTRADIOL [Suspect]
     Indication: CONTRACEPTION
     Dosage: UNK UNK, QD
     Route: 048
     Dates: start: 20090408, end: 20090929
  2. HYDROCODONE BITARTRATE AND ACETAMINOPHEN [Concomitant]
  3. PENICILLIN [Concomitant]

REACTIONS (6)
  - SCAR [None]
  - GALLBLADDER INJURY [None]
  - CHOLELITHIASIS [None]
  - PAIN [None]
  - EMOTIONAL DISTRESS [None]
  - BILE DUCT STONE [None]
